FAERS Safety Report 8576080-9 (Version None)
Quarter: 2012Q3

REPORT INFORMATION
  Report Type: 
  Country: None (occurrence: None)
  Receive Date: 20120807
  Receipt Date: 20120801
  Transmission Date: 20120928
  Serious: Yes (Hospitalization)
  Sender: FDA-Public Use
  Company Number: KR-ABBOTT-12P-090-0918868-00

PATIENT
  Age: 56 Year
  Sex: Female
  Weight: 58 kg

DRUGS (31)
  1. PARAMACET [Concomitant]
     Indication: ANALGESIC THERAPY
  2. ULTRACET [Concomitant]
     Indication: ANTIINFLAMMATORY THERAPY
     Dosage: 2 TABLETS DAILY
     Route: 048
     Dates: start: 20120224
  3. AMARYL [Concomitant]
     Indication: DIABETES MELLITUS
     Dosage: 1.5 TABLET DAILY
     Route: 048
  4. YUHAN METHOTREXATE [Concomitant]
     Indication: RHEUMATOID ARTHRITIS
     Dosage: 5 SYRINGE DAILY
     Route: 048
     Dates: start: 20110919, end: 20120217
  5. PHENIRAMINE [Concomitant]
     Indication: ANTIALLERGIC THERAPY
     Dosage: 3A DAILY
     Route: 042
     Dates: start: 20120116, end: 20120118
  6. AROBEST [Concomitant]
     Indication: NERVOUS SYSTEM DISORDER
     Dosage: 3 TABLETS DAILY
     Route: 048
     Dates: start: 20120128
  7. LEVOTUSS [Concomitant]
     Indication: ANTITUSSIVE THERAPY
     Dosage: 3 TABLETS DAILY
     Route: 048
     Dates: start: 20120120, end: 20120126
  8. CALCORT [Concomitant]
     Indication: RHEUMATOID ARTHRITIS
     Dosage: 2 TABLETS DAILY
     Route: 048
     Dates: start: 20110516, end: 20120104
  9. MYPHARM FOLIC ACID [Concomitant]
     Indication: VITAMIN B COMPLEX DEFICIENCY
     Dosage: 1 TABLET DAILY
     Route: 048
     Dates: start: 20110516
  10. PARAMACET [Concomitant]
     Indication: ANTIINFLAMMATORY THERAPY
     Dosage: SEMI TAB, 2 TABLETS DAILY
     Route: 048
     Dates: start: 20110516, end: 20120202
  11. PANTOPRAZOLE SODIUM [Concomitant]
     Indication: PROPHYLAXIS
  12. METHOTREXATE SODIUM [Concomitant]
     Indication: RHEUMATOID ARTHRITIS
     Dosage: 1 SYRINGE DAILY
     Route: 030
     Dates: start: 20111024, end: 20111110
  13. MYM METHOCARBAMOL [Concomitant]
     Indication: MUSCLE RELAXANT THERAPY
     Dosage: 1G/10ML VIAL, 1 VIAL DAILY
     Route: 042
     Dates: start: 20120104, end: 20120117
  14. ILSUNG AUGUMENTIN [Concomitant]
     Indication: ANTIBIOTIC THERAPY
     Dosage: 3 TABLETS DAILY
     Route: 048
     Dates: start: 20120120, end: 20120126
  15. COUGH [Concomitant]
     Indication: PRODUCTIVE COUGH
  16. ERDOS [Concomitant]
     Indication: ANTITUSSIVE THERAPY
     Dosage: 2 CAPSULES DAILY
     Route: 048
     Dates: start: 20120120, end: 20120126
  17. HUMIRA [Suspect]
     Indication: RHEUMATOID ARTHRITIS
     Route: 058
     Dates: start: 20111024
  18. COZAAR [Concomitant]
     Indication: BLOOD PRESSURE MANAGEMENT
     Route: 048
     Dates: start: 20120120, end: 20120322
  19. COZAAR [Concomitant]
     Route: 048
     Dates: start: 20120120
  20. PANTOPRAZOLE SODIUM [Concomitant]
     Indication: PROPHYLAXIS AGAINST GASTROINTESTINAL ULCER
     Dosage: 1 TABLET DAILY
     Route: 048
     Dates: start: 20110503, end: 20120202
  21. DISOLIN [Concomitant]
     Indication: RHEUMATOID ARTHRITIS
     Dosage: 40 MG DAILY
     Route: 042
     Dates: start: 20120116, end: 20120116
  22. CALCORT [Concomitant]
     Route: 048
     Dates: start: 20120105, end: 20120202
  23. GLUPA [Concomitant]
     Indication: DIABETES MELLITUS
     Dosage: 2 TABLETS DAILY
     Route: 048
  24. ERDOS [Concomitant]
     Indication: PRODUCTIVE COUGH
  25. COUGH [Concomitant]
     Indication: ANTITUSSIVE THERAPY
     Dosage: 80 MILLILITER DAILY
     Route: 048
     Dates: start: 20120118, end: 20120118
  26. PIPERACILLIN AND TAZOBACTAM [Concomitant]
     Indication: ANTIBIOTIC THERAPY
     Dosage: 3 VIALS DAILY
     Route: 042
     Dates: start: 20120119, end: 20120119
  27. AMOSERTAN [Concomitant]
     Indication: BLOOD PRESSURE MANAGEMENT
     Dosage: 5/50 MG
     Route: 048
     Dates: start: 20120323
  28. YUHAN METHOTREXATE [Concomitant]
     Dosage: 3 TABLETS DAILY
     Route: 048
     Dates: start: 20120224
  29. ALLEGRA [Concomitant]
     Indication: ANTIALLERGIC THERAPY
     Dosage: 1 TABLET DAILY
     Route: 048
     Dates: start: 20120116, end: 20120118
  30. UCERAX [Concomitant]
     Indication: ANXIOLYTIC THERAPY
     Dosage: 2 TABLETS DAILY
     Route: 048
     Dates: start: 20120116, end: 20120119
  31. LEVOTUSS [Concomitant]
     Indication: PRODUCTIVE COUGH

REACTIONS (2)
  - JOINT SWELLING [None]
  - ARTHRALGIA [None]
